FAERS Safety Report 12548303 (Version 2)
Quarter: 2016Q3

REPORT INFORMATION
  Report Type: Report from Study
  Country: US (occurrence: US)
  Receive Date: 20160712
  Receipt Date: 20160720
  Transmission Date: 20161109
  Serious: Yes (Hospitalization, Other)
  Sender: FDA-Public Use
  Company Number: US-JNJFOC-20160706021

PATIENT
  Sex: Female

DRUGS (16)
  1. FAMOTIDINE. [Concomitant]
     Active Substance: FAMOTIDINE
  2. IMBRUVICA [Suspect]
     Active Substance: IBRUTINIB
     Indication: CHRONIC LYMPHOCYTIC LEUKAEMIA
     Route: 048
     Dates: start: 20160623
  3. GABAPENTIN. [Concomitant]
     Active Substance: GABAPENTIN
  4. MUCINEX [Concomitant]
     Active Substance: GUAIFENESIN
  5. OXYCODONE HYDROCHLORIDE. [Concomitant]
     Active Substance: OXYCODONE HYDROCHLORIDE
  6. MOMETASONE FUROATE. [Concomitant]
     Active Substance: MOMETASONE FUROATE
  7. LORAZEPAM. [Concomitant]
     Active Substance: LORAZEPAM
  8. CIPROFLOXACIN HYDROCHLORIDE. [Concomitant]
     Active Substance: CIPROFLOXACIN HYDROCHLORIDE
  9. FEXOFENADINE HYDROCHLORIDE. [Concomitant]
     Active Substance: FEXOFENADINE HYDROCHLORIDE
  10. VALACYCLOVIR HCL [Concomitant]
     Active Substance: VALACYCLOVIR HYDROCHLORIDE
  11. ALLOPURINOL SODIUM. [Concomitant]
     Active Substance: ALLOPURINOL SODIUM
  12. HYDROCODONE BITARTRATE W/PARACETAMOL [Concomitant]
     Active Substance: ACETAMINOPHEN\HYDROCODONE BITARTRATE
  13. LIDODERM [Concomitant]
     Active Substance: LIDOCAINE
  14. PRILOSEC [Concomitant]
     Active Substance: OMEPRAZOLE MAGNESIUM
  15. METHENAMINE MANDELATE. [Concomitant]
     Active Substance: METHENAMINE MANDELATE
  16. NASONEX [Concomitant]
     Active Substance: MOMETASONE FUROATE

REACTIONS (14)
  - Palpitations [Recovered/Resolved]
  - Decreased appetite [Recovering/Resolving]
  - Confusional state [Recovered/Resolved]
  - Joint swelling [Unknown]
  - Blood uric acid increased [Unknown]
  - Productive cough [Unknown]
  - Sciatica [Recovered/Resolved]
  - Eye infection [Unknown]
  - Blood sodium decreased [Unknown]
  - Anaemia [Unknown]
  - Dyspnoea [Unknown]
  - White blood cell count increased [Recovering/Resolving]
  - Fatigue [Not Recovered/Not Resolved]
  - Back pain [Recovered/Resolved]

NARRATIVE: CASE EVENT DATE: 2016
